FAERS Safety Report 6863743-6 (Version None)
Quarter: 2010Q3

REPORT INFORMATION
  Report Type: 
  Country: None (occurrence: None)
  Receive Date: 20100720
  Receipt Date: 20100705
  Transmission Date: 20110219
  Serious: Yes (Hospitalization)
  Sender: FDA-Public Use
  Company Number: AUR-APL-2010-01713

PATIENT
  Age: 14 Year
  Sex: Female

DRUGS (2)
  1. RISPERIDONE [Suspect]
     Dosage: 1.5MG, BID, ORAL
     Route: 048
  2. WELLBUTRIN XL [Suspect]
     Dosage: 150MG, BID, ORAL
     Route: 048

REACTIONS (7)
  - CONVULSION [None]
  - DISORIENTATION [None]
  - DYSARTHRIA [None]
  - HEART RATE INCREASED [None]
  - MULTIPLE DRUG OVERDOSE INTENTIONAL [None]
  - NAUSEA [None]
  - SOMNOLENCE [None]
